FAERS Safety Report 21028328 (Version 1)
Quarter: 2022Q2

REPORT INFORMATION
  Report Type: Spontaneous
  Country: CH (occurrence: CH)
  Receive Date: 20220630
  Receipt Date: 20220630
  Transmission Date: 20220721
  Serious: Yes (Hospitalization, Other)
  Sender: FDA-Public Use
  Company Number: None

PATIENT

DRUGS (7)
  1. VALTREX [Suspect]
     Active Substance: VALACYCLOVIR HYDROCHLORIDE
     Indication: Product used for unknown indication
     Dosage: UNK, DOSAGE INDICATION 500
     Route: 065
  2. COMIRNATY [Suspect]
     Active Substance: TOZINAMERAN
     Indication: Product used for unknown indication
     Dosage: 1 DF, 4TH VACCINATION DOSE
     Route: 030
     Dates: start: 20220511, end: 20220511
  3. COVID-19 VACCINE [Concomitant]
     Indication: Product used for unknown indication
     Dosage: 1 DF
     Route: 030
     Dates: start: 2021, end: 2021
  4. COVID-19 VACCINE [Concomitant]
     Dosage: 1 DF
     Route: 030
     Dates: start: 2021, end: 2021
  5. COVID-19 VACCINE [Concomitant]
     Dosage: 1 DF
     Route: 030
  6. CYCLOSPORINE [Suspect]
     Active Substance: CYCLOSPORINE
     Indication: Allogenic stem cell transplantation
     Dosage: UNK, 50 DOSE REDUCTION TOOK PLACE IN THE WEEK OF 05/09/2022
     Route: 065
  7. BACTRIM [Suspect]
     Active Substance: SULFAMETHOXAZOLE\TRIMETHOPRIM
     Indication: Product used for unknown indication
     Dosage: UNK, DOSAGE INDICATION: 800/160
     Route: 065

REACTIONS (3)
  - Rash [Recovering/Resolving]
  - Dyspnoea [Recovering/Resolving]
  - Cutaneous vasculitis [Unknown]

NARRATIVE: CASE EVENT DATE: 20220511
